FAERS Safety Report 6343839-8 (Version None)
Quarter: 2009Q3

REPORT INFORMATION
  Report Type: 
  Country: None (occurrence: None)
  Receive Date: 20090908
  Receipt Date: 20090902
  Transmission Date: 20100115
  Serious: Yes (Other)
  Sender: FDA-Public Use
  Company Number: PHHY2009CA37699

PATIENT
  Sex: Male

DRUGS (1)
  1. OCTREOTIDE [Suspect]
     Dosage: UNK
     Route: 058
     Dates: start: 20090807

REACTIONS (2)
  - BLOOD PRESSURE INCREASED [None]
  - GAIT SPASTIC [None]
